FAERS Safety Report 4667364-5 (Version None)
Quarter: 2005Q2

REPORT INFORMATION
  Report Type: 
  Country: None (occurrence: None)
  Receive Date: 20050520
  Receipt Date: 20041018
  Transmission Date: 20051028
  Serious: Yes (Other)
  Sender: FDA-Public Use
  Company Number: PHEH2004US11280

PATIENT
  Age: 68 Year
  Sex: Male

DRUGS (12)
  1. ZOMETA [Suspect]
     Indication: METASTASES TO BONE
     Dosage: 4 MG, UNK
     Route: 042
     Dates: start: 20020601, end: 20040901
  2. ZESTRIL [Concomitant]
     Dosage: 10 MG, QD
  3. NIFEREX [Concomitant]
     Indication: ANAEMIA
     Dosage: 150 MG, QD
  4. STOOL SOFTENER [Concomitant]
     Indication: CONSTIPATION
     Dosage: UNK, PRN
  5. DARVOCET-N 100 [Concomitant]
     Indication: PAIN
     Dosage: UNK, Q6H
  6. THALIDOMIDE [Concomitant]
     Indication: NEOPLASM MALIGNANT
     Dosage: 100 MG, QD
     Dates: start: 20040801
  7. LORCET-HD [Concomitant]
     Indication: PAIN
     Dosage: UNK, Q4H
  8. SKELAXIN [Concomitant]
     Indication: MUSCLE RELAXANT THERAPY
     Dosage: 800 MG, QID
  9. CELEBREX [Concomitant]
     Indication: PAIN
     Dosage: 200 MG, Q12H
  10. MEGACE [Concomitant]
     Indication: INCREASED APPETITE
     Dosage: 20 ML, QD
  11. CALCIUM GLUCONATE [Concomitant]
     Dosage: 500 MG, QD
  12. MAGNESIUM [Concomitant]
     Dosage: UNK, BID

REACTIONS (5)
  - IMPAIRED HEALING [None]
  - JAW OPERATION [None]
  - OSTEONECROSIS [None]
  - PAIN [None]
  - TOOTH EXTRACTION [None]
